FAERS Safety Report 22308249 (Version 1)
Quarter: 2023Q2

REPORT INFORMATION
  Report Type: Spontaneous
  Country: FR (occurrence: FR)
  Receive Date: 20230511
  Receipt Date: 20230511
  Transmission Date: 20230721
  Serious: Yes (Death, Other)
  Sender: FDA-Public Use
  Company Number: FR-INCYTE CORPORATION-2023IN003304

PATIENT

DRUGS (3)
  1. TAFASITAMAB [Suspect]
     Active Substance: TAFASITAMAB
     Indication: Diffuse large B-cell lymphoma
     Dosage: 600 MILLIGRAM (ON DAY1, DAY4, DAY8, DAY15, DAY22)
     Route: 065
     Dates: start: 20220505, end: 20220608
  2. TAFASITAMAB [Suspect]
     Active Substance: TAFASITAMAB
     Dosage: 600 UNK
     Route: 065
     Dates: end: 20220614
  3. LENALIDOMIDE [Concomitant]
     Active Substance: LENALIDOMIDE
     Indication: Non-Hodgkin^s lymphoma refractory
     Dosage: 3RD LINE THERAPY WITH TAFASITAMAB
     Route: 065

REACTIONS (4)
  - Death [Fatal]
  - Diffuse large B-cell lymphoma [Unknown]
  - Disease progression [Unknown]
  - Drug ineffective for unapproved indication [Unknown]

NARRATIVE: CASE EVENT DATE: 20220808
